FAERS Safety Report 10032606 (Version 1)
Quarter: 2014Q1

REPORT INFORMATION
  Report Type: Spontaneous
  Country: US (occurrence: US)
  Receive Date: 20140324
  Receipt Date: 20140324
  Transmission Date: 20141002
  Serious: Yes (Hospitalization)
  Sender: FDA-Public Use
  Company Number: US-GLAXOSMITHKLINE-A1065146A

PATIENT
  Age: 60 Year
  Sex: Male

DRUGS (5)
  1. ADVAIR [Suspect]
     Indication: PRODUCT USED FOR UNKNOWN INDICATION
     Route: 065
  2. ALBUTEROL NEBULIZER [Concomitant]
  3. HYDROCHLOROTHIAZIDE [Concomitant]
  4. LISINOPRIL [Concomitant]
  5. SPORANOX [Concomitant]

REACTIONS (6)
  - Chronic obstructive pulmonary disease [Unknown]
  - Chest pain [Unknown]
  - Leukocytosis [Unknown]
  - Metabolic alkalosis [Unknown]
  - Dyspnoea [Unknown]
  - Treatment noncompliance [Unknown]
